FAERS Safety Report 14115522 (Version 4)
Quarter: 2018Q1

REPORT INFORMATION
  Report Type: Report from Study
  Country: IE (occurrence: IE)
  Receive Date: 20171023
  Receipt Date: 20180215
  Transmission Date: 20180508
  Serious: Yes (Hospitalization, Congenital Anomaly)
  Sender: FDA-Public Use
  Company Number: IE-NOVOPROD-566994

PATIENT
  Age: 37 Year
  Sex: Female
  Weight: 59.8 kg

DRUGS (7)
  1. FOLIC ACID. [Concomitant]
     Active Substance: FOLIC ACID
     Indication: PROPHYLAXIS
     Dosage: UNK
     Dates: start: 20161117
  2. ASPIRIN                            /00002701/ [Concomitant]
     Active Substance: ASPIRIN
     Indication: PROPHYLAXIS
     Dosage: 75 MG, QD
     Dates: start: 20170712
  3. VITAMIN D                          /00107901/ [Concomitant]
     Active Substance: ERGOCALCIFEROL
     Indication: PROPHYLAXIS
     Dosage: UNK
     Dates: start: 20170629
  4. NOVORAPID [Suspect]
     Active Substance: INSULIN ASPART
     Indication: TYPE 1 DIABETES MELLITUS
     Dosage: UNK
     Route: 058
  5. HUMALOG [Suspect]
     Active Substance: INSULIN LISPRO
     Indication: TYPE 1 DIABETES MELLITUS
     Dosage: 28 IU, QD
     Route: 058
     Dates: start: 20160401
  6. HUMALOG [Suspect]
     Active Substance: INSULIN LISPRO
     Dosage: 38 IU, QD
     Route: 058
  7. HUMALOG [Suspect]
     Active Substance: INSULIN LISPRO
     Dosage: 22.7 IU, QD
     Route: 058
     Dates: start: 20160125

REACTIONS (6)
  - Diabetic ketoacidosis [Recovered/Resolved]
  - Viral infection [Not Recovered/Not Resolved]
  - Exposure during pregnancy [Recovered/Resolved]
  - Congenital cerebral cyst [Recovered/Resolved]
  - Beta haemolytic streptococcal infection [Recovered/Resolved]
  - Urinary tract infection [Recovered/Resolved]

NARRATIVE: CASE EVENT DATE: 20170516
